FAERS Safety Report 14982414 (Version 1)
Quarter: 2018Q2

REPORT INFORMATION
  Report Type: Spontaneous
  Country: US (occurrence: US)
  Receive Date: 20180607
  Receipt Date: 20180607
  Transmission Date: 20180711
  Serious: No
  Sender: FDA-Public Use
  Company Number: US-PFIZER INC-2018231064

PATIENT
  Age: 48 Year
  Sex: Female

DRUGS (12)
  1. TAMOXIFEN [Concomitant]
     Active Substance: TAMOXIFEN
  2. DOCETAXEL. [Suspect]
     Active Substance: DOCETAXEL
     Dosage: UNK UNK, 4 CYCLES, EVERY 3 WEEKS
     Dates: start: 20121018, end: 20130131
  3. MULTIGEN PLUS [Concomitant]
  4. PARAPLATIN [Concomitant]
     Active Substance: CARBOPLATIN
  5. TAXOTERE [Concomitant]
     Active Substance: DOCETAXEL
  6. AMBIEN [Concomitant]
     Active Substance: ZOLPIDEM TARTRATE
  7. XANAX [Concomitant]
     Active Substance: ALPRAZOLAM
  8. EFFEXOR [Concomitant]
     Active Substance: VENLAFAXINE HYDROCHLORIDE
  9. CARBOPLATIN. [Concomitant]
     Active Substance: CARBOPLATIN
  10. NEURONTIN [Concomitant]
     Active Substance: GABAPENTIN
  11. CARVEDILOL. [Concomitant]
     Active Substance: CARVEDILOL
  12. HERCEPTIN [Concomitant]
     Active Substance: TRASTUZUMAB

REACTIONS (6)
  - Hair disorder [Unknown]
  - Madarosis [Unknown]
  - Hair texture abnormal [Unknown]
  - Alopecia [Not Recovered/Not Resolved]
  - Depressed mood [Unknown]
  - Hair colour changes [Unknown]

NARRATIVE: CASE EVENT DATE: 201307
